FAERS Safety Report 17943798 (Version 2)
Quarter: 2020Q3

REPORT INFORMATION
  Report Type: Spontaneous
  Country: CN (occurrence: CN)
  Receive Date: 20200625
  Receipt Date: 20200721
  Transmission Date: 20201103
  Serious: Yes (Other)
  Sender: FDA-Public Use
  Company Number: CN-ROCHE-2628323

PATIENT
  Age: 39 Year
  Sex: Female

DRUGS (8)
  1. PACLITAXEL. [Concomitant]
     Active Substance: PACLITAXEL
     Dates: start: 20150413, end: 20160715
  2. HERCEPTIN [Suspect]
     Active Substance: TRASTUZUMAB
     Indication: HER2 POSITIVE BREAST CANCER
     Dosage: 340 MG/270 MG
     Route: 065
     Dates: start: 20150413, end: 20160715
  3. GOSERELIN [Concomitant]
     Active Substance: GOSERELIN
     Dates: start: 20151027, end: 20191120
  4. HERCEPTIN [Suspect]
     Active Substance: TRASTUZUMAB
     Dosage: 440 MG/330 MG
     Route: 065
     Dates: start: 20200106, end: 20200504
  5. EPIRUBICIN [Concomitant]
     Active Substance: EPIRUBICIN
     Dates: start: 20150413, end: 20160715
  6. ANASTROZOLE. [Concomitant]
     Active Substance: ANASTROZOLE
     Dates: start: 20151027, end: 20191120
  7. PERJETA [Suspect]
     Active Substance: PERTUZUMAB
     Indication: HER2 POSITIVE BREAST CANCER
     Dosage: 840 MG/ 440 MG
     Route: 065
     Dates: start: 20200106, end: 20200504
  8. CYCLOPHOSPHAMIDE. [Concomitant]
     Active Substance: CYCLOPHOSPHAMIDE
     Dates: start: 20150413, end: 20160715

REACTIONS (5)
  - Post procedural haematoma [Recovered/Resolved]
  - Pneumonia [Unknown]
  - Lithiasis [Recovered/Resolved]
  - Pulmonary fibrosis [Unknown]
  - Biliary tract disorder [Recovered/Resolved]

NARRATIVE: CASE EVENT DATE: 2019
